FAERS Safety Report 9702244 (Version 1)
Quarter: 2013Q4

REPORT INFORMATION
  Report Type: Spontaneous
  Country: US (occurrence: None)
  Receive Date: 20131119
  Receipt Date: 20131119
  Transmission Date: 20140711
  Serious: Yes (Hospitalization)
  Sender: FDA-Public Use
  Company Number: 2013US002816

PATIENT
  Age: 66 Year
  Sex: Female

DRUGS (1)
  1. ICLUSIG [Suspect]
     Indication: CHRONIC MYELOID LEUKAEMIA
     Route: 048
     Dates: start: 20130928, end: 20131101

REACTIONS (4)
  - Dehydration [None]
  - Skin wrinkling [None]
  - Palpitations [None]
  - Dyspnoea [None]
